FAERS Safety Report 7888797-X (Version None)
Quarter: 2011Q4

REPORT INFORMATION
  Report Type: 
  Country: None (occurrence: None)
  Receive Date: 20111031
  Receipt Date: 20111021
  Transmission Date: 20120403
  Serious: Yes (Life-Threatening, Other)
  Sender: FDA-Public Use
  Company Number: 2011SP050050

PATIENT
  Age: 2 Year
  Sex: Male

DRUGS (5)
  1. ROCURONIUM BROMIDE [Suspect]
     Indication: PRODUCT USED FOR UNKNOWN INDICATION
  2. ISOFLURANE [Suspect]
     Indication: PRODUCT USED FOR UNKNOWN INDICATION
     Dosage: INH
     Route: 055
  3. FENTANYL [Concomitant]
  4. CEFAZOLIN [Concomitant]
  5. MIDAZOLAM [Concomitant]

REACTIONS (11)
  - BRADYCARDIA [None]
  - CEREBRAL INFARCTION [None]
  - COMPARTMENT SYNDROME [None]
  - ELECTROCARDIOGRAM ST SEGMENT ELEVATION [None]
  - ACUTE RESPIRATORY DISTRESS SYNDROME [None]
  - HAEMODIALYSIS [None]
  - RENAL FAILURE [None]
  - PULMONARY OEDEMA [None]
  - HYPOTENSION [None]
  - KOUNIS SYNDROME [None]
  - CONVULSION [None]
